FAERS Safety Report 24329502 (Version 1)
Quarter: 2024Q3

REPORT INFORMATION
  Report Type: Spontaneous
  Country: GB (occurrence: GB)
  Receive Date: 20240917
  Receipt Date: 20240917
  Transmission Date: 20241017
  Serious: Yes (Other)
  Sender: ELI LILLY AND CO
  Company Number: None

PATIENT
  Age: 57 Year
  Sex: Female
  Weight: 73 kg

DRUGS (2)
  1. MOUNJARO [Suspect]
     Active Substance: TIRZEPATIDE
     Indication: Weight control
     Dosage: 10 MG, UNKNOWN
     Route: 065
     Dates: start: 20240306
  2. MOUNJARO [Suspect]
     Active Substance: TIRZEPATIDE
     Indication: Weight control
     Dosage: 10 MG, UNKNOWN
     Route: 065
     Dates: start: 20240306

REACTIONS (6)
  - Pruritus [Not Recovered/Not Resolved]
  - Skin reaction [Unknown]
  - Urticaria [Unknown]
  - Scratch [Unknown]
  - Rash erythematous [Unknown]
  - Dermatitis [Unknown]

NARRATIVE: CASE EVENT DATE: 20240626
